FAERS Safety Report 7960892-6 (Version None)
Quarter: 2011Q4

REPORT INFORMATION
  Report Type: 
  Country: None (occurrence: None)
  Receive Date: 20111201
  Receipt Date: 20111121
  Transmission Date: 20120403
  Serious: Yes (Other)
  Sender: FDA-Public Use
  Company Number: 2011MA001152

PATIENT
  Age: 31 Year
  Sex: Female
  Weight: 94.8018 kg

DRUGS (20)
  1. NITROFURANTOIN [Concomitant]
  2. CIPROFLOXACIN [Concomitant]
  3. AMITRIPTYLINE HCL [Concomitant]
  4. OMEPRAZOLE [Concomitant]
  5. AZITHROMYCIN [Concomitant]
  6. OXYBUTYNIN [Concomitant]
  7. IMITREX [Concomitant]
  8. PROTONIX [Concomitant]
  9. Q-TUSSIN SYRUP [Concomitant]
  10. LEVOTHYROXINE SODIUM [Concomitant]
  11. VITAMIN B COMPLEX CAP [Concomitant]
  12. MAXALT-MLT [Concomitant]
  13. ACETAMINOPHEN [Concomitant]
  14. ZANTAC [Concomitant]
  15. CLINDAMYCIN [Concomitant]
  16. TOPAMAX [Concomitant]
  17. LEXAPRO [Concomitant]
  18. ULTRAM [Concomitant]
  19. METOCLOPRAMIDE [Suspect]
     Indication: GASTROOESOPHAGEAL REFLUX DISEASE
     Dosage: 10 MG;TID;PO
     Route: 048
     Dates: start: 20070207, end: 20081117
  20. PREVACID [Concomitant]

REACTIONS (35)
  - PAIN [None]
  - ABDOMINAL PAIN [None]
  - HYPOAESTHESIA [None]
  - TREATMENT NONCOMPLIANCE [None]
  - FEELING ABNORMAL [None]
  - TARDIVE DYSKINESIA [None]
  - SPEECH DISORDER [None]
  - DYSPHEMIA [None]
  - GALLBLADDER DISORDER [None]
  - STRESS [None]
  - THERMAL BURN [None]
  - ALOPECIA [None]
  - GASTRITIS [None]
  - DUODENITIS [None]
  - BACK PAIN [None]
  - FATIGUE [None]
  - VISUAL IMPAIRMENT [None]
  - DYSPHONIA [None]
  - BREAST PAIN [None]
  - PAIN IN EXTREMITY [None]
  - OROPHARYNGEAL PAIN [None]
  - FACIAL PAIN [None]
  - TREMOR [None]
  - SLEEP APNOEA SYNDROME [None]
  - AMNESIA [None]
  - SJOGREN'S SYNDROME [None]
  - LIMB INJURY [None]
  - HEADACHE [None]
  - ANXIETY [None]
  - FLAT AFFECT [None]
  - BLOOD PRESSURE INCREASED [None]
  - POLLAKIURIA [None]
  - DYSGEUSIA [None]
  - DEPRESSION [None]
  - OVARIAN CYST [None]
